FAERS Safety Report 10227726 (Version 1)
Quarter: 2014Q2

REPORT INFORMATION
  Report Type: Not Available
  Country: US (occurrence: US)
  Receive Date: 20140610
  Receipt Date: 20140610
  Transmission Date: 20141212
  Serious: Yes (Other)
  Sender: FDA-Public Use
  Company Number: US-LUPIN PHARMACEUTICALS INC.-E2B_00002085

PATIENT
  Sex: Female
  Weight: 86.26 kg

DRUGS (3)
  1. LISINOPRIL AND HYDROCHLOROTHIAZIDE TABLETS USP 20MG/25 MG [Suspect]
     Indication: HYPERTENSION
     Dates: start: 2011
  2. LISINOPRIL AND HYDROCHLOROTHIAZIDE TABLETS USP 20MG/25 MG [Suspect]
  3. METOPROLOL [Concomitant]
     Indication: PRODUCT USED FOR UNKNOWN INDICATION
     Route: 065

REACTIONS (3)
  - Coeliac disease [Unknown]
  - Dermatitis herpetiformis [Not Recovered/Not Resolved]
  - Drug dose omission [Unknown]
